FAERS Safety Report 6536902-X (Version None)
Quarter: 2010Q1

REPORT INFORMATION
  Report Type: 
  Country: None (occurrence: None)
  Receive Date: 20100113
  Receipt Date: 20100108
  Transmission Date: 20100710
  Serious: Yes (Death)
  Sender: FDA-Public Use
  Company Number: DE-GILEAD-2009-0025057

PATIENT
  Sex: Male

DRUGS (2)
  1. TRUVADA [Suspect]
     Indication: HIV INFECTION
     Dates: start: 20090930
  2. SUSTIVA [Concomitant]
     Dates: start: 20090930

REACTIONS (2)
  - KAPOSI'S SARCOMA [None]
  - PROTEIN URINE PRESENT [None]
